FAERS Safety Report 20789251 (Version 1)
Quarter: 2022Q2

REPORT INFORMATION
  Report Type: Report from Study
  Country: BR (occurrence: BR)
  Receive Date: 20220505
  Receipt Date: 20220505
  Transmission Date: 20220721
  Serious: Yes (Other)
  Sender: FDA-Public Use
  Company Number: BR-JNJFOC-20211113340

PATIENT
  Age: 75 Year
  Sex: Male
  Weight: 112 kg

DRUGS (2)
  1. REMICADE [Suspect]
     Active Substance: INFLIXIMAB
     Indication: Psoriatic arthropathy
     Route: 042
     Dates: start: 20131111
  2. ADALIMUMAB [Concomitant]
     Active Substance: ADALIMUMAB
     Route: 065

REACTIONS (5)
  - Deafness [Unknown]
  - Amnesia [Unknown]
  - Tremor [Unknown]
  - Feeling cold [Unknown]
  - Blood pressure increased [Unknown]
